FAERS Safety Report 4908154-5 (Version None)
Quarter: 2006Q1

REPORT INFORMATION
  Report Type: 
  Country: None (occurrence: None)
  Receive Date: 20060113
  Receipt Date: 20050930
  Transmission Date: 20060701
  Serious: No
  Sender: FDA-Public Use
  Company Number: 2005SP003302

PATIENT
  Age: 69 Year
  Sex: Female
  Weight: 67.586 kg

DRUGS (2)
  1. LUNESTA [Suspect]
     Indication: INITIAL INSOMNIA
     Dosage: 3 MG;HS;ORAL
     Route: 048
     Dates: start: 20050901, end: 20050901
  2. XANAX [Concomitant]

REACTIONS (1)
  - DYSGEUSIA [None]
